FAERS Safety Report 6848765-3 (Version None)
Quarter: 2010Q3

REPORT INFORMATION
  Report Type: 
  Country: None (occurrence: None)
  Receive Date: 20100716
  Receipt Date: 20070912
  Transmission Date: 20110219
  Serious: Yes (Other)
  Sender: FDA-Public Use
  Company Number: US-PFIZER INC-2007076412

PATIENT
  Age: 57 Year
  Sex: Female
  Weight: 56.818 kg

DRUGS (1)
  1. CHANTIX [Suspect]
     Indication: SMOKING CESSATION THERAPY
     Dates: start: 20070101, end: 20070101

REACTIONS (2)
  - DEPRESSION [None]
  - PERSONALITY CHANGE [None]
